FAERS Safety Report 9416529 (Version 1)
Quarter: 2013Q3

REPORT INFORMATION
  Report Type: Spontaneous
  Country: DE (occurrence: DE)
  Receive Date: 20130724
  Receipt Date: 20130724
  Transmission Date: 20140515
  Serious: Yes (Other)
  Sender: FDA-Public Use
  Company Number: DE-JNJFOC-20130711422

PATIENT
  Age: 83 Year
  Sex: Female
  Weight: 65 kg

DRUGS (10)
  1. XARELTO [Suspect]
     Indication: CEREBROVASCULAR ACCIDENT PROPHYLAXIS
     Route: 048
     Dates: start: 20130613, end: 20130627
  2. XARELTO [Suspect]
     Indication: ATRIAL FIBRILLATION
     Route: 048
     Dates: start: 20130613, end: 20130627
  3. PANTOPRAZOLE [Concomitant]
     Route: 065
  4. FERRO-FOLSAN [Concomitant]
     Route: 065
  5. MALUS SYLVESTRIS DRY FRUIT [Concomitant]
     Route: 065
  6. METFORMIN [Concomitant]
     Route: 065
  7. METOPROLOL [Concomitant]
     Route: 065
  8. CITALOPRAM [Concomitant]
     Route: 065
  9. VALSARTAN [Concomitant]
     Route: 065
  10. LOPERAMID [Concomitant]
     Route: 065

REACTIONS (1)
  - Thrombocytopenia [Recovered/Resolved]
